FAERS Safety Report 8423946-6 (Version None)
Quarter: 2012Q2

REPORT INFORMATION
  Report Type: 
  Country: None (occurrence: None)
  Receive Date: 20120608
  Receipt Date: 20120424
  Transmission Date: 20120825
  Serious: No
  Sender: FDA-Public Use
  Company Number: US-ASTRAZENECA-2012SE26598

PATIENT
  Age: 79 Year
  Sex: Female
  Weight: 64.9 kg

DRUGS (3)
  1. IMDUR [Concomitant]
  2. HYDROCHLOROTHIAZDE TAB [Concomitant]
  3. ATACAND [Suspect]
     Indication: MYOCARDIAL INFARCTION
     Route: 048

REACTIONS (5)
  - BACK PAIN [None]
  - RHINITIS [None]
  - FATIGUE [None]
  - INTENTIONAL DRUG MISUSE [None]
  - TREMOR [None]
